FAERS Safety Report 21506602 (Version 2)
Quarter: 2025Q1

REPORT INFORMATION
  Report Type: Spontaneous
  Country: US (occurrence: US)
  Receive Date: 20221026
  Receipt Date: 20250108
  Transmission Date: 20250408
  Serious: No
  Sender: SANOFI AVENTIS
  Company Number: US-SA-SAC20221020001254

PATIENT
  Age: 50 Year
  Sex: Female

DRUGS (37)
  1. DUPIXENT [Suspect]
     Active Substance: DUPILUMAB
     Indication: Asthma
     Dosage: 300 MG, QOW
     Route: 058
     Dates: start: 20220222
  2. ALBUTEROL SULFATE [Concomitant]
     Active Substance: ALBUTEROL SULFATE
  3. ATORVASTATIN [Concomitant]
     Active Substance: ATORVASTATIN
  4. AZELASTINE [Concomitant]
     Active Substance: AZELASTINE
  5. AZITHROMYCIN [Concomitant]
     Active Substance: AZITHROMYCIN
  6. BACLOFEN [Concomitant]
     Active Substance: BACLOFEN
  7. CLOBETASOL [Concomitant]
     Active Substance: CLOBETASOL
  8. DULERA [Concomitant]
     Active Substance: FORMOTEROL FUMARATE DIHYDRATE\MOMETASONE FUROATE
  9. DULOXETINE [Concomitant]
     Active Substance: DULOXETINE
  10. EPINASTINE [Concomitant]
     Active Substance: EPINASTINE
  11. EPINEPHRINE [Concomitant]
     Active Substance: EPINEPHRINE
  12. ESTRADIOL [Concomitant]
     Active Substance: ESTRADIOL
  13. FLUOXETINE [Concomitant]
     Active Substance: FLUOXETINE HYDROCHLORIDE
  14. FLUTICASONE [Concomitant]
     Active Substance: FLUTICASONE
  15. JARDIANCE [Concomitant]
     Active Substance: EMPAGLIFLOZIN
  16. MAXIDEX [Concomitant]
     Active Substance: DEXAMETHASONE
  17. METFORMIN [Concomitant]
     Active Substance: METFORMIN HYDROCHLORIDE
  18. MONTELUKAST [Concomitant]
     Active Substance: MONTELUKAST
  19. OZEMPIC [Concomitant]
     Active Substance: SEMAGLUTIDE
  20. PREDNISONE [Concomitant]
     Active Substance: PREDNISONE
  21. PROMETHAZINE [Concomitant]
     Active Substance: PROMETHAZINE HYDROCHLORIDE
  22. TERCONAZOLE [Concomitant]
     Active Substance: TERCONAZOLE
  23. CHOLECALCIFEROL [Concomitant]
     Active Substance: CHOLECALCIFEROL
  24. LEVOTHYROXINE [Concomitant]
     Active Substance: LEVOTHYROXINE
  25. PREDNISONE [Concomitant]
     Active Substance: PREDNISONE
  26. FLUCONAZOLE [Concomitant]
     Active Substance: FLUCONAZOLE
  27. VITAMIN D3 [Concomitant]
     Active Substance: CHOLECALCIFEROL
  28. CICLOPIROX [Concomitant]
     Active Substance: CICLOPIROX
  29. DOXYCYCLINE HYDROCHLORIDE [Concomitant]
     Active Substance: DOXYCYCLINE HYDROCHLORIDE
  30. SERTRALINE [Concomitant]
     Active Substance: SERTRALINE HYDROCHLORIDE
  31. SHINGRIX [Concomitant]
     Active Substance: RECOMBINANT VARICELLA ZOSTER VIRUS (VZV) GLYCOPROTEIN E
  32. ACETAMINOPHEN\BUTALBITAL\CAFFEINE [Concomitant]
     Active Substance: ACETAMINOPHEN\BUTALBITAL\CAFFEINE
  33. MOUNJARO [Concomitant]
     Active Substance: TIRZEPATIDE
  34. HYDROCODONE BITARTRATE AND ACETAMINOPHEN [Concomitant]
     Active Substance: ACETAMINOPHEN\HYDROCODONE BITARTRATE
  35. METHYLPREDNISOLONE [Concomitant]
     Active Substance: METHYLPREDNISOLONE
  36. AMMONIUM LACTATE [Concomitant]
     Active Substance: AMMONIUM LACTATE
  37. BENZONATATE [Concomitant]
     Active Substance: BENZONATATE

REACTIONS (4)
  - Impaired quality of life [Unknown]
  - Laryngitis [Unknown]
  - Asthma [Unknown]
  - Drug ineffective [Unknown]

NARRATIVE: CASE EVENT DATE: 20220101
